FAERS Safety Report 7878475-5 (Version None)
Quarter: 2011Q4

REPORT INFORMATION
  Report Type: 
  Country: None (occurrence: None)
  Receive Date: 20111012
  Receipt Date: 20110708
  Transmission Date: 20120403
  Serious: Yes (Other)
  Sender: FDA-Public Use
  Company Number: 036878

PATIENT
  Sex: Male
  Weight: 100 kg

DRUGS (3)
  1. FISH OIL [Concomitant]
  2. KEPPRA [Suspect]
     Indication: EPILEPSY
     Dosage: (1500 MG BID ORAL)
     Route: 048
  3. IBUPROFEN (ADVIL) [Concomitant]

REACTIONS (1)
  - CONVULSION [None]
